FAERS Safety Report 14723877 (Version 3)
Quarter: 2018Q2

REPORT INFORMATION
  Report Type: Spontaneous
  Country: DE (occurrence: DE)
  Receive Date: 20180405
  Receipt Date: 20180515
  Transmission Date: 20180711
  Serious: Yes (Hospitalization, Other)
  Sender: FDA-Public Use
  Company Number: DE-MYLANLABS-2018M1020762

PATIENT
  Age: 79 Year
  Sex: Male

DRUGS (6)
  1. BENDAMUSTINE HYDROCHLORIDE. [Suspect]
     Active Substance: BENDAMUSTINE HYDROCHLORIDE
     Indication: AUTOIMMUNE HAEMOLYTIC ANAEMIA
     Dosage: OVER 4 CYCLES
  2. MABTHERA [Suspect]
     Active Substance: RITUXIMAB
     Indication: AUTOIMMUNE HAEMOLYTIC ANAEMIA
     Dosage: OVER 4 CYCLES
  3. BENDAMUSTINE HYDROCHLORIDE. [Suspect]
     Active Substance: BENDAMUSTINE HYDROCHLORIDE
     Indication: CHRONIC LYMPHOCYTIC LEUKAEMIA
  4. PREDNISOLONE. [Suspect]
     Active Substance: PREDNISOLONE
     Indication: AUTOIMMUNE HAEMOLYTIC ANAEMIA
     Dosage: OVER 4 CYCLES
     Route: 048
  5. MABTHERA [Suspect]
     Active Substance: RITUXIMAB
     Indication: CHRONIC LYMPHOCYTIC LEUKAEMIA
  6. PREDNISOLONE. [Suspect]
     Active Substance: PREDNISOLONE
     Indication: CHRONIC LYMPHOCYTIC LEUKAEMIA

REACTIONS (6)
  - Dyspnoea [Unknown]
  - Pneumocystis jirovecii infection [Recovered/Resolved]
  - Pneumothorax [Unknown]
  - Atypical pneumonia [Recovered/Resolved]
  - Subcutaneous emphysema [Unknown]
  - Cytomegalovirus infection [Recovered/Resolved]
